FAERS Safety Report 23211031 (Version 1)
Quarter: 2023Q4

REPORT INFORMATION
  Report Type: Spontaneous
  Country: US (occurrence: None)
  Receive Date: 20231120
  Receipt Date: 20231120
  Transmission Date: 20240110
  Serious: Yes (Other)
  Sender: FDA-Public Use
  Company Number: None

PATIENT
  Age: 52 Year
  Sex: Female

DRUGS (1)
  1. SERMORELIN ACETATE [Suspect]
     Active Substance: SERMORELIN ACETATE
     Dosage: OTHER FREQUENCY : 5 NIGHTS PER WEEK;?
     Route: 058
     Dates: start: 20230501, end: 20231118

REACTIONS (11)
  - Injection site pruritus [None]
  - Erythema [None]
  - Pruritus [None]
  - Pruritus [None]
  - Diarrhoea [None]
  - Vomiting [None]
  - Skin discolouration [None]
  - Hypersensitivity [None]
  - Wrong technique in product usage process [None]
  - Product communication issue [None]
  - Expired product administered [None]

NARRATIVE: CASE EVENT DATE: 20231118
